FAERS Safety Report 7092887-1 (Version None)
Quarter: 2010Q4

REPORT INFORMATION
  Report Type: 
  Country: None (occurrence: None)
  Receive Date: 20101110
  Receipt Date: 20101103
  Transmission Date: 20110411
  Serious: No
  Sender: FDA-Public Use
  Company Number: US-PFIZER INC-2010107333

PATIENT
  Sex: Male
  Weight: 92.517 kg

DRUGS (6)
  1. NEURONTIN [Suspect]
     Indication: LUMBAR RADICULOPATHY
     Dosage: 300 MG, 2X/DAY
     Route: 048
     Dates: start: 20100701, end: 20100801
  2. NEURONTIN [Suspect]
     Dosage: 300 MG, 3X/DAY
     Dates: end: 20100621
  3. GABAPENTIN [Suspect]
     Dosage: 300 MG, UNK
  4. QUINAPRIL [Concomitant]
     Indication: HYPERTENSION
     Dosage: UNK
  5. COZAAR [Concomitant]
     Dosage: UNK
  6. CRESTOR [Concomitant]
     Dosage: UNK

REACTIONS (4)
  - DRUG INEFFECTIVE [None]
  - MUSCULOSKELETAL DISCOMFORT [None]
  - OEDEMA PERIPHERAL [None]
  - PAIN IN EXTREMITY [None]
